FAERS Safety Report 9542198 (Version 2)
Quarter: 2014Q1

REPORT INFORMATION
  Report Type: Spontaneous
  Country: US (occurrence: None)
  Receive Date: 20130918
  Receipt Date: 20140318
  Transmission Date: 20141002
  Serious: Yes (Other)
  Sender: FDA-Public Use
  Company Number: 2013CT000052

PATIENT
  Age: 59 Year
  Sex: Female
  Weight: 90.72 kg

DRUGS (7)
  1. KORLYM (MIFEPRISTONE) [Suspect]
     Indication: CUSHING^S SYNDROME
     Dates: start: 201306
  2. PROZAC [Concomitant]
  3. WELLBUTRIN [Concomitant]
  4. THYROID MEDICATION [Concomitant]
  5. BLOOD PRESSURE MEDICATION [Concomitant]
  6. GABAPENTIN [Concomitant]
  7. MYRBETRIQ [Concomitant]

REACTIONS (4)
  - Feeling abnormal [None]
  - Influenza like illness [None]
  - Influenza [None]
  - Fatigue [None]
